FAERS Safety Report 7620214-7 (Version None)
Quarter: 2011Q3

REPORT INFORMATION
  Report Type: 
  Country: None (occurrence: None)
  Receive Date: 20110719
  Receipt Date: 20110706
  Transmission Date: 20111222
  Serious: Yes (Hospitalization)
  Sender: FDA-Public Use
  Company Number: PHHY2011US61393

PATIENT
  Age: 19 Year
  Sex: Female

DRUGS (3)
  1. FORMOTEROL FUMARATE [Suspect]
     Indication: ASTHMA
  2. FEXOFENADINE [Suspect]
  3. ALBUTEROL SULATE [Suspect]

REACTIONS (8)
  - DRUG INEFFECTIVE [None]
  - DYSPNOEA [None]
  - MASS [None]
  - LUNG NEOPLASM [None]
  - HISTOPLASMOSIS [None]
  - MUSCLE MASS [None]
  - ASTHMA [None]
  - COUGH [None]
